FAERS Safety Report 4668254-4 (Version None)
Quarter: 2005Q2

REPORT INFORMATION
  Report Type: 
  Country: None (occurrence: None)
  Receive Date: 20050523
  Receipt Date: 20050317
  Transmission Date: 20051028
  Serious: Yes (Hospitalization, Disabling, Other)
  Sender: FDA-Public Use
  Company Number: PHFR2005GB01265

PATIENT
  Age: 51 Year
  Weight: 59 kg

DRUGS (5)
  1. PAMIDRONATE DISODIUM [Suspect]
     Indication: METASTASIS
     Dosage: 90MG/EVERY 4 WEEKS
     Route: 042
     Dates: start: 20020518, end: 20041220
  2. VENLAFAXINE HCL [Concomitant]
     Dosage: 75MG/DAY
     Route: 048
  3. TRAMADOL [Concomitant]
     Route: 048
  4. LANSOPRAZOLE [Concomitant]
     Indication: DYSPEPSIA
     Dosage: 30MG/DAY
     Route: 048
  5. DICLOFENAC SODIUM [Concomitant]
     Dosage: 15MG/DAY
     Route: 048

REACTIONS (4)
  - ASEPTIC NECROSIS BONE [None]
  - OSTEOMYELITIS [None]
  - PLASTIC SURGERY [None]
  - TOOTH EXTRACTION [None]
